FAERS Safety Report 4827131-6 (Version None)
Quarter: 2005Q4

REPORT INFORMATION
  Report Type: 
  Country: None (occurrence: None)
  Receive Date: 20051114
  Receipt Date: 20051103
  Transmission Date: 20060501
  Serious: Yes (Other)
  Sender: FDA-Public Use
  Company Number: DE-JNJFOC-20051100982

PATIENT
  Age: 35 Year
  Weight: 63 kg

DRUGS (2)
  1. REMICADE [Suspect]
     Route: 042
  2. IBUPROFEN [Concomitant]
     Indication: PAIN
     Route: 065

REACTIONS (2)
  - HYPERTENSIVE CRISIS [None]
  - INFUSION RELATED REACTION [None]
